FAERS Safety Report 6494833-8 (Version None)
Quarter: 2009Q4

REPORT INFORMATION
  Report Type: 
  Country: None (occurrence: None)
  Receive Date: 20091214
  Receipt Date: 20090331
  Transmission Date: 20100525
  Serious: No
  Sender: FDA-Public Use
  Company Number: US-BRISTOL-MYERS SQUIBB COMPANY-14568133

PATIENT
  Age: 36 Year
  Sex: Male

DRUGS (3)
  1. ABILIFY [Suspect]
     Indication: BIPOLAR DISORDER
     Dosage: DOSE REDUCED TO 7.5MG;DURATION MINIMUM OF 16 MONTHS
  2. CELEXA [Concomitant]
  3. WELLBUTRIN [Concomitant]

REACTIONS (1)
  - MUSCLE CONTRACTURE [None]
